FAERS Safety Report 26155993 (Version 1)
Quarter: 2025Q4

REPORT INFORMATION
  Report Type: Other
  Country: KR (occurrence: KR)
  Receive Date: 20251215
  Receipt Date: 20251215
  Transmission Date: 20260117
  Serious: Yes (Hospitalization, Other)
  Sender: NOVITIUM PHARMA
  Company Number: KR-NOVITIUM PHARMA-000388

PATIENT
  Age: 1 Day
  Sex: Female

DRUGS (1)
  1. LIDOCAINE [Suspect]
     Active Substance: LIDOCAINE
     Indication: Pain management

REACTIONS (1)
  - Local anaesthetic systemic toxicity [Recovered/Resolved]
